FAERS Safety Report 5792999-6 (Version None)
Quarter: 2008Q2

REPORT INFORMATION
  Report Type: 
  Country: None (occurrence: None)
  Receive Date: 20080627
  Receipt Date: 20080617
  Transmission Date: 20081010
  Serious: Yes (Other)
  Sender: FDA-Public Use
  Company Number: PHHY2008SE11190

PATIENT

DRUGS (1)
  1. LIORESAL [Suspect]
     Dosage: 30 TABL INTENTIONALLY

REACTIONS (1)
  - INTENTIONAL OVERDOSE [None]
